FAERS Safety Report 17986105 (Version 1)
Quarter: 2020Q3

REPORT INFORMATION
  Report Type: Spontaneous
  Country: JP (occurrence: JP)
  Receive Date: 20200707
  Receipt Date: 20200707
  Transmission Date: 20201103
  Serious: Yes (Hospitalization)
  Sender: FDA-Public Use
  Company Number: JP-AMGEN-JPNSP2020041523

PATIENT
  Age: 66 Year
  Sex: Female

DRUGS (6)
  1. NESP [Suspect]
     Active Substance: DARBEPOETIN ALFA
     Indication: NEPHROGENIC ANAEMIA
     Dosage: 60 MICROGRAM, QWK
     Route: 010
     Dates: end: 202002
  2. MIRCERA [Concomitant]
     Active Substance: METHOXY POLYETHYLENE GLYCOL-EPOETIN BETA
     Dosage: 50 UG, 1X/4 WEEKS
     Route: 065
     Dates: start: 20200309
  3. MIRCERA [Concomitant]
     Active Substance: METHOXY POLYETHYLENE GLYCOL-EPOETIN BETA
     Dosage: 50 UG
     Route: 065
     Dates: start: 20200510, end: 20200510
  4. MIRCERA [Concomitant]
     Active Substance: METHOXY POLYETHYLENE GLYCOL-EPOETIN BETA
     Dosage: 25 UG, 1X/WEEK
     Route: 065
     Dates: start: 20200622
  5. MIRCERA [Concomitant]
     Active Substance: METHOXY POLYETHYLENE GLYCOL-EPOETIN BETA
     Dosage: 50 UG, 1X/WEEK
     Route: 065
     Dates: start: 20200212, end: 20200219
  6. MIRCERA [Concomitant]
     Active Substance: METHOXY POLYETHYLENE GLYCOL-EPOETIN BETA
     Dosage: 50 UG
     Route: 065
     Dates: start: 20200420, end: 20200420

REACTIONS (2)
  - Avulsion fracture [Unknown]
  - Drug ineffective [Recovered/Resolved]

NARRATIVE: CASE EVENT DATE: 20200115
